FAERS Safety Report 9273034 (Version 1)
Quarter: 2013Q2

REPORT INFORMATION
  Report Type: Spontaneous
  Country: US (occurrence: US)
  Receive Date: 20130506
  Receipt Date: 20130506
  Transmission Date: 20140414
  Serious: Yes (Other)
  Sender: FDA-Public Use
  Company Number: US-TEVA-403020USA

PATIENT
  Sex: 0

DRUGS (1)
  1. QVAR [Suspect]
     Route: 055

REACTIONS (1)
  - Candida infection [Unknown]
